FAERS Safety Report 12997281 (Version 1)
Quarter: 2016Q4

REPORT INFORMATION
  Report Type: Spontaneous
  Country: US (occurrence: US)
  Receive Date: 20161205
  Receipt Date: 20161205
  Transmission Date: 20170207
  Serious: No
  Sender: FDA-Public Use
  Company Number: US-ASTRAZENECA-2016SF24994

PATIENT
  Age: 860 Month
  Sex: Male
  Weight: 124.7 kg

DRUGS (5)
  1. LEVEMIR [Concomitant]
     Active Substance: INSULIN DETEMIR
     Dates: start: 2013
  2. NOVOLOG [Concomitant]
     Active Substance: INSULIN ASPART
     Dates: start: 2013
  3. GABAPENTIN. [Concomitant]
     Active Substance: GABAPENTIN
     Indication: NEUROPATHY PERIPHERAL
     Dosage: FOUR TIMES A DAY
     Route: 048
     Dates: start: 2013
  4. INSULIN [Concomitant]
     Active Substance: INSULIN NOS
  5. BYDUREON [Suspect]
     Active Substance: EXENATIDE
     Indication: TYPE 2 DIABETES MELLITUS
     Route: 065
     Dates: start: 201611

REACTIONS (4)
  - Diaphragmalgia [Recovering/Resolving]
  - Muscle tightness [Recovering/Resolving]
  - Dysphonia [Unknown]
  - Stress [Unknown]

NARRATIVE: CASE EVENT DATE: 201611
